FAERS Safety Report 10466345 (Version 1)
Quarter: 2014Q3

REPORT INFORMATION
  Report Type: Spontaneous
  Country: US (occurrence: None)
  Receive Date: 20140918
  Receipt Date: 20140918
  Transmission Date: 20150326
  Serious: Yes (Hospitalization, Other)
  Sender: FDA-Public Use
  Company Number: ADR-2014-01671

PATIENT
  Age: 70 Year
  Sex: Male

DRUGS (1)
  1. BACLOFEN INTRATHECAL 2000MCG/ML [Suspect]
     Active Substance: BACLOFEN
     Indication: MUSCLE SPASTICITY

REACTIONS (5)
  - Hypoaesthesia [None]
  - Hyperaesthesia [None]
  - Condition aggravated [None]
  - Muscle spasticity [None]
  - Device connection issue [None]
